FAERS Safety Report 12504560 (Version 1)
Quarter: 2016Q2

REPORT INFORMATION
  Report Type: Spontaneous
  Country: DE (occurrence: DE)
  Receive Date: 20160628
  Receipt Date: 20160628
  Transmission Date: 20160815
  Serious: Yes (Disabling)
  Sender: FDA-Public Use
  Company Number: DE-TEVA-670762GER

PATIENT
  Age: 33 Year
  Sex: Male
  Weight: 60 kg

DRUGS (4)
  1. BROMAZEPAM-RATIOPHARM 6 MG TABLETTEN [Suspect]
     Active Substance: BROMAZEPAM
     Route: 065
  2. TRAMADOLOR M [Suspect]
     Active Substance: TRAMADOL HYDROCHLORIDE
     Route: 065
  3. TAVOR EXPIDET 2.5 MG [Suspect]
     Active Substance: LORAZEPAM
     Route: 065
  4. DIAZEPAM ABZ TROPFEN [Suspect]
     Active Substance: DIAZEPAM
     Route: 065

REACTIONS (1)
  - Drug abuse [Unknown]

NARRATIVE: CASE EVENT DATE: 20160406
